FAERS Safety Report 11614542 (Version 2)
Quarter: 2016Q1

REPORT INFORMATION
  Report Type: Report from Study
  Country: US (occurrence: US)
  Receive Date: 20151009
  Receipt Date: 20160331
  Transmission Date: 20160525
  Serious: Yes (Death, Hospitalization, Other)
  Sender: FDA-Public Use
  Company Number: US-BRISTOL-MYERS SQUIBB COMPANY-BMS-2015-065504

PATIENT
  Age: 59 Year
  Sex: Male
  Weight: 70.4 kg

DRUGS (1)
  1. IPILIMUMAB [Suspect]
     Active Substance: IPILIMUMAB
     Indication: MYELODYSPLASTIC SYNDROME
     Dosage: 3 MG/KG, QCYCLE
     Route: 042
     Dates: start: 20150819, end: 20150909

REACTIONS (2)
  - Sepsis [Fatal]
  - Febrile neutropenia [Unknown]

NARRATIVE: CASE EVENT DATE: 20150915
